FAERS Safety Report 8264641-6 (Version None)
Quarter: 2012Q2

REPORT INFORMATION
  Report Type: 
  Country: None (occurrence: None)
  Receive Date: 20120406
  Receipt Date: 20120326
  Transmission Date: 20120825
  Serious: Yes (Hospitalization)
  Sender: FDA-Public Use
  Company Number: IT-ELI_LILLY_AND_COMPANY-IT201203008221

PATIENT
  Sex: Male

DRUGS (2)
  1. METFORMIN HCL [Concomitant]
     Indication: DIABETES MELLITUS
     Dosage: 1850 UNK, UNK
  2. GEMZAR [Suspect]
     Indication: PLEURAL MESOTHELIOMA MALIGNANT
     Dosage: 1850 MG, UNKNOWN
     Dates: start: 20120301

REACTIONS (3)
  - MYALGIA [None]
  - ARTHRALGIA [None]
  - PYREXIA [None]
